FAERS Safety Report 18907056 (Version 1)
Quarter: 2021Q1

REPORT INFORMATION
  Report Type: Spontaneous
  Country: US (occurrence: US)
  Receive Date: 20210217
  Receipt Date: 20210217
  Transmission Date: 20210420
  Serious: Yes (Hospitalization)
  Sender: FDA-Public Use
  Company Number: US-WALMART-2106929

PATIENT
  Age: 62 Year
  Sex: Female

DRUGS (2)
  1. STOOL SOFTENER EXTRA STRENGTH [Concomitant]
     Active Substance: DOCUSATE SODIUM
  2. STOOL SOFTENER LAXATIVE [Suspect]
     Active Substance: DOCUSATE SODIUM
     Indication: CONSTIPATION
     Route: 048

REACTIONS (3)
  - Periorbital swelling [None]
  - Urticaria [None]
  - Dyspnoea [None]
